FAERS Safety Report 8524674-9 (Version None)
Quarter: 2012Q3

REPORT INFORMATION
  Report Type: 
  Country: None (occurrence: None)
  Receive Date: 20120720
  Receipt Date: 20120709
  Transmission Date: 20120928
  Serious: No
  Sender: FDA-Public Use
  Company Number: US-009507513-1207USA002247

PATIENT

DRUGS (11)
  1. SINGULAIR [Suspect]
     Indication: ASTHMA
     Dosage: 10 MG, QD
     Route: 048
     Dates: start: 20000101, end: 20110101
  2. ATARAX (ALPRAZOLAM) [Concomitant]
  3. ZANTAC [Concomitant]
  4. HALDOL [Concomitant]
  5. EPIPEN [Concomitant]
  6. FLOVENT [Concomitant]
  7. LEXAPRO [Concomitant]
  8. ALBUTEROL [Concomitant]
  9. SEROQUEL [Concomitant]
  10. BENADRYL [Concomitant]
  11. ALLEGRA [Concomitant]

REACTIONS (1)
  - URTICARIA [None]
